FAERS Safety Report 10668455 (Version 4)
Quarter: 2015Q1

REPORT INFORMATION
  Report Type: Report from Study
  Country: DE (occurrence: DE)
  Receive Date: 20141222
  Receipt Date: 20150309
  Transmission Date: 20150720
  Serious: Yes (Life-Threatening, Hospitalization)
  Sender: FDA-Public Use
  Company Number: DE-SA-2014SA173933

PATIENT
  Age: 48 Year
  Sex: Male

DRUGS (4)
  1. SILDENAFIL. [Concomitant]
     Active Substance: SILDENAFIL
  2. GABAPENTIN. [Concomitant]
     Active Substance: GABAPENTIN
     Dosage: STRENGTH: 100
  3. GABAPENTIN. [Concomitant]
     Active Substance: GABAPENTIN
     Dosage: STRENGTH: 300
  4. AUBAGIO [Suspect]
     Active Substance: TERIFLUNOMIDE
     Indication: MULTIPLE SCLEROSIS
     Route: 048

REACTIONS (9)
  - Presyncope [Recovered/Resolved]
  - Circulatory collapse [Unknown]
  - Syncope [Unknown]
  - Tachyarrhythmia [Unknown]
  - Myocardial infarction [Unknown]
  - Hypotension [Recovered/Resolved]
  - Chest pain [Recovered/Resolved]
  - Atrial fibrillation [Unknown]
  - Paraesthesia [Unknown]

NARRATIVE: CASE EVENT DATE: 20141118
